FAERS Safety Report 10027374 (Version 1)
Quarter: 2014Q1

REPORT INFORMATION
  Report Type: Spontaneous
  Country: FR (occurrence: None)
  Receive Date: 20140318
  Receipt Date: 20140318
  Transmission Date: 20141002
  Serious: Yes (Other)
  Sender: FDA-Public Use
  Company Number: 2012RT000003

PATIENT
  Age: 50 Year
  Sex: Male

DRUGS (1)
  1. CYSTEAMINE BITARTRATE [Suspect]
     Indication: HUNTINGTON^S DISEASE
     Route: 048
     Dates: start: 20110720, end: 20121219

REACTIONS (8)
  - Loss of consciousness [None]
  - Malaise [None]
  - Abdominal pain upper [None]
  - Headache [None]
  - Tremor [None]
  - Abdominal pain [None]
  - Abdominal discomfort [None]
  - Femur fracture [None]
